FAERS Safety Report 5786848-X (Version None)
Quarter: 2008Q2

REPORT INFORMATION
  Report Type: 
  Country: None (occurrence: None)
  Receive Date: 20080620
  Receipt Date: 20080613
  Transmission Date: 20081010
  Serious: Yes (Death)
  Sender: FDA-Public Use
  Company Number: 163-21880-08060944

PATIENT
  Age: 74 Year
  Sex: Female

DRUGS (1)
  1. REVLIMID [Suspect]
     Indication: MULTIPLE MYELOMA
     Dosage: 25 MG, DAILY FOR 21 DAYS, ORAL
     Route: 048
     Dates: start: 20070430, end: 20080101

REACTIONS (9)
  - DISEASE PROGRESSION [None]
  - DYSURIA [None]
  - FRACTURE [None]
  - MULTIPLE MYELOMA [None]
  - OEDEMA PERIPHERAL [None]
  - PARALYSIS [None]
  - PRURITUS [None]
  - SWELLING [None]
  - WHITE BLOOD CELL COUNT DECREASED [None]
